FAERS Safety Report 9529596 (Version 3)
Quarter: 2013Q4

REPORT INFORMATION
  Report Type: Spontaneous
  Country: US (occurrence: US)
  Receive Date: 20130917
  Receipt Date: 20131115
  Transmission Date: 20140711
  Serious: Yes (Death, Hospitalization)
  Sender: FDA-Public Use
  Company Number: US-INCYTE CORPORATION-2013IN002067

PATIENT
  Age: 72 Year
  Sex: Male

DRUGS (2)
  1. JAKAFI [Suspect]
     Dosage: 5 MG, BID
     Route: 048
     Dates: start: 201203
  2. JAKAFI [Suspect]
     Dosage: 5 MG, BID
     Route: 048
     Dates: start: 201308

REACTIONS (3)
  - Death [Fatal]
  - Fall [Unknown]
  - Cellulitis [Unknown]
